FAERS Safety Report 14986173 (Version 1)
Quarter: 2018Q2

REPORT INFORMATION
  Report Type: Spontaneous
  Country: GB (occurrence: GB)
  Receive Date: 20180607
  Receipt Date: 20180607
  Transmission Date: 20180711
  Serious: Yes (Other)
  Sender: FDA-Public Use
  Company Number: GB-ALLERGAN-1826819US

PATIENT
  Age: 44 Year
  Sex: Female

DRUGS (2)
  1. BOTOX [Suspect]
     Active Substance: ONABOTULINUMTOXINA
     Dosage: 27 UNITS, SINGLE
     Route: 030
     Dates: start: 20180430, end: 20180430
  2. BOTOX [Suspect]
     Active Substance: ONABOTULINUMTOXINA
     Indication: SKIN WRINKLING
     Dosage: 2 UNITS, SINGLE
     Route: 030
     Dates: start: 20180516, end: 20180516

REACTIONS (10)
  - Off label use [Unknown]
  - Seizure [Recovered/Resolved]
  - Disturbance in attention [Recovered/Resolved]
  - Syncope [Recovered/Resolved]
  - Loss of consciousness [Recovered/Resolved]
  - Fatigue [Unknown]
  - Breath holding [Recovered/Resolved]
  - Urinary tract infection [Unknown]
  - Hypotension [Recovered/Resolved]
  - Pulse abnormal [Recovered/Resolved]

NARRATIVE: CASE EVENT DATE: 20180516
